FAERS Safety Report 8530550-8 (Version None)
Quarter: 2012Q3

REPORT INFORMATION
  Report Type: 
  Country: None (occurrence: None)
  Receive Date: 20120723
  Receipt Date: 20120717
  Transmission Date: 20120928
  Serious: Yes (Hospitalization)
  Sender: FDA-Public Use
  Company Number: JP-SANOFI-AVENTIS-2012SA050871

PATIENT
  Age: 48 Year
  Sex: Male

DRUGS (4)
  1. PREDNISOLONE [Suspect]
     Indication: SYSTEMIC LUPUS ERYTHEMATOSUS
     Route: 048
  2. GLIMEPIRIDE [Suspect]
     Indication: DIABETES MELLITUS
     Route: 065
  3. VOGLIBOSE [Suspect]
     Indication: DIABETES MELLITUS
     Route: 065
  4. PREDNISOLONE [Suspect]
     Route: 048

REACTIONS (3)
  - FLATULENCE [None]
  - PNEUMOPERITONEUM [None]
  - PNEUMATOSIS INTESTINALIS [None]
